FAERS Safety Report 9307284 (Version 2)
Quarter: 2013Q3

REPORT INFORMATION
  Report Type: Spontaneous
  Country: CA (occurrence: CA)
  Receive Date: 20130524
  Receipt Date: 20130820
  Transmission Date: 20140515
  Serious: Yes (Hospitalization, Other)
  Sender: FDA-Public Use
  Company Number: CA-ROCHE-GNE320446

PATIENT
  Age: 51 Year
  Sex: Female

DRUGS (2)
  1. XOLAIR [Suspect]
     Indication: ASTHMA
     Dosage: UNK UNK, UNKNOWN
     Route: 058
     Dates: start: 20050718
  2. XOLAIR [Suspect]
     Route: 058
     Dates: start: 20050804

REACTIONS (7)
  - Fall [Unknown]
  - Lower limb fracture [Not Recovered/Not Resolved]
  - Limb injury [Unknown]
  - Hand fracture [Unknown]
  - Fracture [Unknown]
  - Impaired driving ability [Unknown]
  - Insomnia [Unknown]
